FAERS Safety Report 22534775 (Version 2)
Quarter: 2023Q2

REPORT INFORMATION
  Report Type: Spontaneous
  Country: AM (occurrence: None)
  Receive Date: 20230608
  Receipt Date: 20230609
  Transmission Date: 20230721
  Serious: Yes (Other)
  Sender: FDA-Public Use
  Company Number: AM-ROCHE-3361780

PATIENT
  Age: 56 Year
  Sex: Male

DRUGS (2)
  1. TECENTRIQ [Suspect]
     Active Substance: ATEZOLIZUMAB
     Indication: Hepatocellular carcinoma
     Dosage: LAST DOSE ADMINISTERED ON 27/APR/2023
     Route: 041
     Dates: start: 20221123
  2. BEVACIZUMAB [Suspect]
     Active Substance: BEVACIZUMAB
     Indication: Hepatocellular carcinoma
     Dosage: LAST DOSE ADMINISTERED AT 27/APR//2023
     Route: 042
     Dates: start: 20221123

REACTIONS (9)
  - Hepatic vascular thrombosis [Unknown]
  - Neoplasm progression [Unknown]
  - Alpha 1 foetoprotein increased [Unknown]
  - Haemorrhoidal haemorrhage [Unknown]
  - Asthenia [Unknown]
  - Dyspnoea [Unknown]
  - Blood creatinine increased [Unknown]
  - Aspartate aminotransferase increased [Unknown]
  - Alanine aminotransferase increased [Unknown]

NARRATIVE: CASE EVENT DATE: 20230501
